FAERS Safety Report 14693450 (Version 1)
Quarter: 2018Q1

REPORT INFORMATION
  Report Type: Spontaneous
  Country: JP (occurrence: JP)
  Receive Date: 20180329
  Receipt Date: 20180329
  Transmission Date: 20180509
  Serious: Yes (Other)
  Sender: FDA-Public Use
  Company Number: JP-BRISTOL-MYERS SQUIBB COMPANY-BMS-2018-027215

PATIENT
  Age: 63 Year
  Sex: Male

DRUGS (4)
  1. REMINYL [Concomitant]
     Active Substance: GALANTAMINE
     Indication: DEMENTIA
     Dosage: 24 MG, UNK
     Route: 048
  2. GLIMEPIRIDE. [Suspect]
     Active Substance: GLIMEPIRIDE
     Indication: DIABETES MELLITUS
     Dosage: 4 MG, UNK
     Route: 065
  3. METGLUCO [Suspect]
     Active Substance: METFORMIN HYDROCHLORIDE
     Indication: DIABETES MELLITUS
     Dosage: 750 MG, QD
     Route: 048
  4. MEMARY [Concomitant]
     Active Substance: MEMANTINE HYDROCHLORIDE
     Indication: DEMENTIA
     Dosage: 20 MG, UNK
     Route: 048

REACTIONS (3)
  - Hypoglycaemia [Unknown]
  - Overdose [Unknown]
  - Dementia Alzheimer^s type [Unknown]
